FAERS Safety Report 21864326 (Version 2)
Quarter: 2023Q1

REPORT INFORMATION
  Report Type: Spontaneous
  Country: US (occurrence: None)
  Receive Date: 20230116
  Receipt Date: 20230119
  Transmission Date: 20230418
  Serious: Yes (Death)
  Sender: FDA-Public Use
  Company Number: US-ROCHE-3262994

PATIENT
  Sex: Male

DRUGS (3)
  1. GAZYVA [Suspect]
     Active Substance: OBINUTUZUMAB
     Indication: Follicular lymphoma
     Route: 042
     Dates: start: 202006
  2. GAZYVA [Suspect]
     Active Substance: OBINUTUZUMAB
     Indication: Lymph node palpable
  3. GAZYVA [Suspect]
     Active Substance: OBINUTUZUMAB
     Indication: Agranulocytosis

REACTIONS (1)
  - Death [Fatal]
